FAERS Safety Report 21123374 (Version 1)
Quarter: 2022Q3

REPORT INFORMATION
  Report Type: Spontaneous
  Country: PT (occurrence: PT)
  Receive Date: 20220724
  Receipt Date: 20220724
  Transmission Date: 20221026
  Serious: Yes (Hospitalization, Other)
  Sender: FDA-Public Use
  Company Number: PT-ALKEM LABORATORIES LIMITED-PT-ALKEM-2022-03437

PATIENT
  Age: 69 Year
  Sex: Female

DRUGS (7)
  1. AZATHIOPRINE [Suspect]
     Active Substance: AZATHIOPRINE
     Indication: Colitis ulcerative
     Dosage: 100 MILLIGRAM, QD
     Route: 065
  2. LEVOFLOXACIN [Suspect]
     Active Substance: LEVOFLOXACIN
     Indication: Intervertebral disc disorder
     Dosage: 500 MILLIGRAM, QD
     Route: 065
  3. MIRTAZAPINE [Suspect]
     Active Substance: MIRTAZAPINE
     Indication: Latent tuberculosis
     Dosage: 30 MILLIGRAM, QD
     Route: 065
  4. MIRTAZAPINE [Suspect]
     Active Substance: MIRTAZAPINE
     Indication: Persistent depressive disorder
  5. LORAZEPAM [Suspect]
     Active Substance: LORAZEPAM
     Indication: Latent tuberculosis
     Dosage: 2.5 MILLIGRAM, QD
     Route: 065
  6. LORAZEPAM [Suspect]
     Active Substance: LORAZEPAM
     Indication: Persistent depressive disorder
  7. MESALAMINE [Suspect]
     Active Substance: MESALAMINE
     Indication: Colitis ulcerative
     Dosage: 3 MILLIGRAM, QD
     Route: 065

REACTIONS (2)
  - Actinomycosis [Recovered/Resolved]
  - Drug ineffective [Unknown]
